FAERS Safety Report 8741038 (Version 2)
Quarter: 2013Q2

REPORT INFORMATION
  Report Type: Spontaneous
  Country: US (occurrence: US)
  Receive Date: 20120824
  Receipt Date: 20130616
  Transmission Date: 20140414
  Serious: No
  Sender: FDA-Public Use
  Company Number: US-ASTRAZENECA-2011SE69953

PATIENT
  Age: 21742 Day
  Sex: Female
  Weight: 81.6 kg

DRUGS (5)
  1. SYMBICORT PMDI [Suspect]
     Indication: ASTHMA
     Dosage: 2 PUFFS TWO TIMES A DAY
     Route: 055
     Dates: start: 2008
  2. SYMBICORT PMDI [Suspect]
     Indication: ASTHMA
     Dosage: SIX PUFFS A DAY AS NEEDED
     Route: 055
  3. ALBUTEROL [Concomitant]
  4. ASPIRIN [Concomitant]
     Route: 048
  5. MULTIVITAMINS [Concomitant]
     Indication: SUPPLEMENTATION THERAPY
     Route: 048

REACTIONS (7)
  - Dyspnoea [Unknown]
  - Bone density abnormal [Unknown]
  - Asthma [Unknown]
  - Blood potassium decreased [Unknown]
  - Inappropriate schedule of drug administration [Unknown]
  - Drug dose omission [Unknown]
  - Intentional drug misuse [Unknown]
